FAERS Safety Report 7153857-8 (Version None)
Quarter: 2010Q4

REPORT INFORMATION
  Report Type: 
  Country: None (occurrence: None)
  Receive Date: 20101213
  Receipt Date: 20101019
  Transmission Date: 20110411
  Serious: No
  Sender: FDA-Public Use
  Company Number: US-ABBOTT-10P-163-0679345-00

PATIENT
  Sex: Female
  Weight: 85.352 kg

DRUGS (3)
  1. MERIDIA [Suspect]
     Indication: WEIGHT CONTROL
     Dates: start: 20100905, end: 20100909
  2. LYRICA [Concomitant]
     Indication: BONE PAIN
     Dosage: 225MG DAILY
  3. SIMVASTATIN [Concomitant]
     Indication: LOW DENSITY LIPOPROTEIN INCREASED

REACTIONS (1)
  - CHEST DISCOMFORT [None]
